FAERS Safety Report 10956407 (Version 1)
Quarter: 2015Q1

REPORT INFORMATION
  Report Type: Report from Study
  Country: GB (occurrence: GB)
  Receive Date: 20150326
  Receipt Date: 20150326
  Transmission Date: 20150721
  Serious: Yes (Other)
  Sender: FDA-Public Use
  Company Number: GB-CELGENE-GBR-2015033787

PATIENT
  Age: 68 Year

DRUGS (1)
  1. AZACITIDINE. [Suspect]
     Active Substance: AZACITIDINE
     Indication: MYELODYSPLASTIC SYNDROME
     Route: 065
     Dates: start: 201408, end: 201410

REACTIONS (5)
  - Anaemia [Unknown]
  - Vomiting [Unknown]
  - Febrile neutropenia [Unknown]
  - Pyrexia [Unknown]
  - Embolism [Unknown]
